FAERS Safety Report 7905114-7 (Version None)
Quarter: 2011Q4

REPORT INFORMATION
  Report Type: 
  Country: None (occurrence: None)
  Receive Date: 20111109
  Receipt Date: 20111027
  Transmission Date: 20120403
  Serious: Yes (Other)
  Sender: FDA-Public Use
  Company Number: JP-PFIZER INC-2011192340

PATIENT
  Age: 28 Year
  Sex: Female
  Weight: 38.9 kg

DRUGS (8)
  1. ALDACTONE [Concomitant]
     Indication: HYPERTENSION
     Dosage: UNK
     Route: 048
  2. LASIX [Concomitant]
     Indication: HYPERTENSION
     Dosage: UNK
     Route: 048
  3. ADALAT [Concomitant]
     Indication: HYPERTENSION
     Dosage: UNK
     Route: 048
  4. COMELIAN [Concomitant]
     Dosage: UNK
     Route: 048
  5. ALFAROL [Concomitant]
     Dosage: UNK
     Route: 048
     Dates: start: 20110324
  6. GASMOTIN [Concomitant]
     Dosage: UNK
     Route: 048
  7. CALBLOCK [Concomitant]
     Indication: HYPERTENSION
     Dosage: UNK
     Route: 048
  8. ATORVASTATIN CALCIUM [Suspect]
     Indication: HYPERCHOLESTEROLAEMIA
     Dosage: 5 MG, 1X/DAY
     Route: 048
     Dates: start: 20101216

REACTIONS (1)
  - RENAL IMPAIRMENT [None]
